FAERS Safety Report 7543261-2 (Version None)
Quarter: 2011Q2

REPORT INFORMATION
  Report Type: 
  Country: None (occurrence: None)
  Receive Date: 20110613
  Receipt Date: 20110606
  Transmission Date: 20111010
  Serious: Yes (Other)
  Sender: FDA-Public Use
  Company Number: DE-GENZYME-FLUD-1001225

PATIENT
  Age: 1 Year
  Sex: Male

DRUGS (11)
  1. FLUDARA [Suspect]
     Indication: COMBINED IMMUNODEFICIENCY
  2. MELPHALAN HYDROCHLORIDE [Suspect]
     Indication: STEM CELL TRANSPLANT
     Dosage: 140 MG/M2, UNK
     Route: 065
  3. YTTRIUM (90 Y) [Suspect]
     Indication: COMBINED IMMUNODEFICIENCY
  4. INDIUM (111 IN) [Suspect]
     Indication: STEM CELL TRANSPLANT
     Dosage: 71 +/- 28 MBQ
     Route: 042
  5. ANTI-THYMOCYTE GLOBULIN NOS [Suspect]
     Indication: COMBINED IMMUNODEFICIENCY
  6. FLUDARA [Suspect]
     Indication: STEM CELL TRANSPLANT
     Dosage: 160 MG/M2, UNK
     Route: 065
  7. MELPHALAN HYDROCHLORIDE [Suspect]
     Indication: COMBINED IMMUNODEFICIENCY
  8. INDIUM (111 IN) [Suspect]
     Indication: COMBINED IMMUNODEFICIENCY
  9. ANTI-THYMOCYTE GLOBULIN NOS [Suspect]
     Indication: STEM CELL TRANSPLANT
     Dosage: UNK
     Route: 065
  10. YTTRIUM (90 Y) [Suspect]
     Indication: STEM CELL TRANSPLANT
     Dosage: UNK
     Route: 042
  11. CYCLOSPORINE [Concomitant]
     Indication: PROPHYLAXIS AGAINST GRAFT VERSUS HOST DISEASE
     Dosage: UNK
     Route: 065

REACTIONS (2)
  - CHRONIC GRAFT VERSUS HOST DISEASE [None]
  - CHOLESTASIS [None]
